FAERS Safety Report 16236589 (Version 2)
Quarter: 2025Q4

REPORT INFORMATION
  Report Type: Spontaneous
  Country: EU (occurrence: EU)
  Receive Date: 20190425
  Receipt Date: 20251029
  Transmission Date: 20260117
  Serious: Yes (Hospitalization, Other)
  Sender: AUROBINDO
  Company Number: EU-AUROBINDO-AUR-APL-2019-022483

PATIENT
  Age: 79 Year
  Sex: Female

DRUGS (2)
  1. ACYCLOVIR [Suspect]
     Active Substance: ACYCLOVIR
     Indication: Encephalitis
     Dosage: UNK
     Route: 065
  2. ACYCLOVIR [Suspect]
     Active Substance: ACYCLOVIR
     Indication: Meningitis

REACTIONS (6)
  - Epilepsy [Unknown]
  - Memory impairment [Unknown]
  - Dizziness [Unknown]
  - Headache [Unknown]
  - Affective disorder [Unknown]
  - Monoparesis [Recovered/Resolved]
